FAERS Safety Report 19785675 (Version 2)
Quarter: 2021Q3

REPORT INFORMATION
  Report Type: Spontaneous
  Country: CA (occurrence: CA)
  Receive Date: 20210903
  Receipt Date: 20210921
  Transmission Date: 20211014
  Serious: Yes (Hospitalization)
  Sender: FDA-Public Use
  Company Number: CA-CELLTRION INC.-2021CA008358

PATIENT

DRUGS (5)
  1. INFLECTRA [Suspect]
     Active Substance: INFLIXIMAB-DYYB
     Dosage: 500 MG AT 0,2,6 WEEKS AND THEN FOLLOWED BY EVERY 8 WEEKS
     Route: 042
     Dates: start: 20210510
  2. INFLECTRA [Suspect]
     Active Substance: INFLIXIMAB-DYYB
     Dosage: 500 MG AT 0,2,6 WEEKS AND THEN FOLLOWED BY EVERY 8 WEEKS MAINTAINANCE
     Route: 042
     Dates: start: 20210630
  3. INFLECTRA [Suspect]
     Active Substance: INFLIXIMAB-DYYB
     Dosage: 500 MG AT 0,2,6 WEEKS AND THEN FOLLOWED BY EVERY 8 WEEKS MAINTAINANCE
     Route: 042
     Dates: start: 20210412
  4. INFLECTRA [Suspect]
     Active Substance: INFLIXIMAB-DYYB
     Indication: CROHN^S DISEASE
     Dosage: 500 MG AT 0,2,6 WEEKS AND THEN FOLLOWED BY EVERY 8 WEEKS MAINTAINANCE
     Route: 042
     Dates: start: 20210330
  5. INFLECTRA [Suspect]
     Active Substance: INFLIXIMAB-DYYB
     Dosage: 500 MG AT 0,2,6 WEEKS AND THEN FOLLOWED BY EVERY 8 WEEKS MAINTAINANCE
     Route: 042
     Dates: start: 20210909

REACTIONS (6)
  - Condition aggravated [Unknown]
  - Intervertebral disc protrusion [Unknown]
  - Intentional product use issue [Unknown]
  - Off label use [Unknown]
  - Inappropriate schedule of product administration [Unknown]
  - Large intestine infection [Unknown]

NARRATIVE: CASE EVENT DATE: 20210510
